FAERS Safety Report 25981973 (Version 2)
Quarter: 2025Q4

REPORT INFORMATION
  Report Type: Spontaneous
  Country: EU (occurrence: EU)
  Receive Date: 20251031
  Receipt Date: 20251113
  Transmission Date: 20260117
  Serious: Yes (Death, Life-Threatening, Hospitalization, Other)
  Sender: AUROBINDO
  Company Number: EU-EMA-DD-20240802-7482707-080505

PATIENT
  Age: 25 Year
  Sex: Female

DRUGS (9)
  1. MYCOPHENOLIC ACID [Suspect]
     Active Substance: MYCOPHENOLIC ACID
     Indication: Autoimmune lymphoproliferative syndrome
     Dosage: UNK
     Route: 065
  2. AZATHIOPRINE [Suspect]
     Active Substance: AZATHIOPRINE
     Indication: Autoimmune lymphoproliferative syndrome
     Dosage: UNK
     Route: 065
  3. CYCLOPHOSPHAMIDE [Suspect]
     Active Substance: CYCLOPHOSPHAMIDE
     Indication: Autoimmune lymphoproliferative syndrome
     Dosage: UNK
     Route: 065
  4. RITUXIMAB [Suspect]
     Active Substance: RITUXIMAB
     Indication: Autoimmune lymphoproliferative syndrome
     Dosage: UNK
     Route: 065
  5. SIROLIMUS [Suspect]
     Active Substance: SIROLIMUS
     Indication: Autoimmune lymphoproliferative syndrome
     Dosage: UNK
     Route: 065
  6. TACROLIMUS [Suspect]
     Active Substance: TACROLIMUS
     Indication: Autoimmune lymphoproliferative syndrome
     Dosage: UNK
     Route: 065
  7. VINCRISTINE [Suspect]
     Active Substance: VINCRISTINE
     Indication: Autoimmune lymphoproliferative syndrome
     Dosage: UNK
     Route: 065
  8. APIXABAN [Concomitant]
     Active Substance: APIXABAN
     Indication: Thrombosis prophylaxis
     Dosage: UNK
     Route: 065
  9. ERYTHROPOIETIN [Concomitant]
     Active Substance: ERYTHROPOIETIN
     Indication: Autoimmune haemolytic anaemia
     Dosage: UNK
     Route: 065

REACTIONS (12)
  - Multiple organ dysfunction syndrome [Fatal]
  - Inflammation [Fatal]
  - Cardiac ventricular thrombosis [Fatal]
  - Bone marrow failure [Fatal]
  - Neutropenia [Fatal]
  - Pyrexia [Fatal]
  - Septic shock [Fatal]
  - Anaemia [Fatal]
  - Sepsis [Fatal]
  - Off label use [Fatal]
  - Pulmonary hypertension [Not Recovered/Not Resolved]
  - Streptococcal sepsis [Unknown]
